FAERS Safety Report 9406596 (Version 1)
Quarter: 2013Q3

REPORT INFORMATION
  Report Type: Report from Study
  Country: CA (occurrence: CA)
  Receive Date: 20130718
  Receipt Date: 20130718
  Transmission Date: 20140515
  Serious: Yes (Hospitalization)
  Sender: FDA-Public Use
  Company Number: CA-JNJFOC-20130707560

PATIENT
  Age: 30 Year
  Sex: Male
  Weight: 77 kg

DRUGS (1)
  1. REMICADE [Suspect]
     Indication: COLITIS ULCERATIVE
     Dosage: FOR 52 WEEKS
     Route: 042
     Dates: start: 2009

REACTIONS (3)
  - Colostomy [Recovering/Resolving]
  - Nausea [Recovered/Resolved]
  - Infusion related reaction [Recovered/Resolved]
